FAERS Safety Report 16667898 (Version 3)
Quarter: 2020Q1

REPORT INFORMATION
  Report Type: Spontaneous
  Country: US (occurrence: US)
  Receive Date: 20190805
  Receipt Date: 20200330
  Transmission Date: 20200409
  Serious: Yes (Other)
  Sender: FDA-Public Use
  Company Number: US-GILEAD-2019-0421736

PATIENT
  Age: 34 Year
  Sex: Male
  Weight: 85 kg

DRUGS (29)
  1. VIREAD [Suspect]
     Active Substance: TENOFOVIR DISOPROXIL FUMARATE
     Indication: HIV INFECTION
     Dosage: 300 MG, QD
     Route: 048
     Dates: start: 200707, end: 201706
  2. DRISDOL [Concomitant]
     Active Substance: ERGOCALCIFEROL
  3. PRILOSEC [Concomitant]
     Active Substance: OMEPRAZOLE MAGNESIUM
  4. ZOVIRAX [Concomitant]
     Active Substance: ACYCLOVIR
  5. TESSALON [Concomitant]
     Active Substance: BENZONATATE
  6. BIKTARVY [Concomitant]
     Active Substance: BICTEGRAVIR SODIUM\EMTRICITABINE\TENOFOVIR ALAFENAMIDE FUMARATE
  7. TYLENOL [Concomitant]
     Active Substance: ACETAMINOPHEN
  8. ULTRAM [Concomitant]
     Active Substance: TRAMADOL HYDROCHLORIDE
  9. ISENTRESS [Concomitant]
     Active Substance: RALTEGRAVIR POTASSIUM
     Dosage: UNK
     Dates: start: 200912
  10. KALETRA [Concomitant]
     Active Substance: LOPINAVIR\RITONAVIR
     Dosage: UNK
     Dates: start: 201001
  11. SULFAMETHOXAZOLE;TRIMETHOPRIM [Concomitant]
     Active Substance: SULFAMETHOXAZOLE\TRIMETHOPRIM
  12. ALDARA [Concomitant]
     Active Substance: IMIQUIMOD
  13. CELEBREX [Concomitant]
     Active Substance: CELECOXIB
  14. SENNA PLUS [DOCUSATE SODIUM;SENNOSIDE A+B] [Concomitant]
  15. AMOXICILLIN. [Concomitant]
     Active Substance: AMOXICILLIN
  16. DESYREL [Concomitant]
     Active Substance: TRAZODONE HYDROCHLORIDE
  17. VALTREX [Concomitant]
     Active Substance: VALACYCLOVIR HYDROCHLORIDE
  18. EPZICOM [Concomitant]
     Active Substance: ABACAVIR SULFATE\LAMIVUDINE
  19. ASPIRIN [ACETYLSALICYLIC ACID] [Concomitant]
     Active Substance: ASPIRIN
  20. DESCOVY [Concomitant]
     Active Substance: EMTRICITABINE\TENOFOVIR ALAFENAMIDE FUMARATE
  21. TIVICAY [Concomitant]
     Active Substance: DOLUTEGRAVIR SODIUM
  22. PREZCOBIX [Concomitant]
     Active Substance: COBICISTAT\DARUNAVIR ETHANOLATE
  23. DICLOXACILLIN [Concomitant]
     Active Substance: DICLOXACILLIN
  24. NEXIUM [Concomitant]
     Active Substance: ESOMEPRAZOLE MAGNESIUM
  25. AUGMENTIN [Concomitant]
     Active Substance: AMOXICILLIN\CLAVULANATE POTASSIUM
  26. HEPARIN [Concomitant]
     Active Substance: HEPARIN SODIUM
  27. INTELENCE [Concomitant]
     Active Substance: ETRAVIRINE
     Dosage: UNK
     Dates: start: 200912
  28. OXYCODONE [Concomitant]
     Active Substance: OXYCODONE
  29. DIFLUCAN [Concomitant]
     Active Substance: FLUCONAZOLE

REACTIONS (9)
  - Osteonecrosis [Not Recovered/Not Resolved]
  - Intentional product use issue [Unknown]
  - Product use issue [Recovered/Resolved]
  - Emotional distress [Unknown]
  - Intentional dose omission [Recovered/Resolved]
  - Economic problem [Unknown]
  - Pain [Unknown]
  - Anhedonia [Unknown]
  - Anxiety [Unknown]

NARRATIVE: CASE EVENT DATE: 200709
